FAERS Safety Report 5404659-1 (Version None)
Quarter: 2007Q3

REPORT INFORMATION
  Report Type: 
  Country: None (occurrence: None)
  Receive Date: 20070731
  Receipt Date: 20070717
  Transmission Date: 20080115
  Serious: Yes (Disabling, Other)
  Sender: FDA-Public Use
  Company Number: 158914ISR

PATIENT
  Age: 71 Year
  Sex: Female

DRUGS (1)
  1. SIMVASTATIN [Suspect]
     Route: 048
     Dates: start: 20070201, end: 20070501

REACTIONS (2)
  - BLINDNESS [None]
  - OPTIC NEUROPATHY [None]
